FAERS Safety Report 5142773-9 (Version None)
Quarter: 2006Q4

REPORT INFORMATION
  Report Type: 
  Country: None (occurrence: None)
  Receive Date: 20061027
  Receipt Date: 20061009
  Transmission Date: 20070319
  Serious: Yes (Hospitalization)
  Sender: FDA-Public Use
  Company Number: US200610001615

PATIENT
  Age: 42 Year
  Sex: Male
  Weight: 56.7 kg

DRUGS (2)
  1. ZYPREXA [Suspect]
     Indication: SCHIZOPHRENIA, PARANOID TYPE
     Dosage: 20 MG
     Dates: start: 19990201, end: 20050218
  2. ZYPREXA [Suspect]
     Indication: SCHIZOPHRENIA, PARANOID TYPE
     Dosage: 20 MG
     Dates: start: 20050218, end: 20050401

REACTIONS (2)
  - CARDIOVERSION [None]
  - DIABETES MELLITUS [None]
